FAERS Safety Report 6419901-8 (Version None)
Quarter: 2009Q4

REPORT INFORMATION
  Report Type: 
  Country: None (occurrence: None)
  Receive Date: 20091029
  Receipt Date: 20091019
  Transmission Date: 20100525
  Serious: Yes (Hospitalization, Other)
  Sender: FDA-Public Use
  Company Number: US-ELI_LILLY_AND_COMPANY-US200910004493

PATIENT
  Sex: Female

DRUGS (2)
  1. FORTEO [Suspect]
     Indication: OSTEOPOROSIS
     Dosage: UNK, UNK
  2. FORTEO [Suspect]
     Dates: start: 20091001

REACTIONS (6)
  - BACK DISORDER [None]
  - BONE DENSITY DECREASED [None]
  - LEG AMPUTATION [None]
  - MALAISE [None]
  - PNEUMONIA [None]
  - SEPSIS [None]
